FAERS Safety Report 7659784-1 (Version None)
Quarter: 2011Q3

REPORT INFORMATION
  Report Type: 
  Country: None (occurrence: None)
  Receive Date: 20110805
  Receipt Date: 20110803
  Transmission Date: 20111222
  Serious: Yes (Hospitalization, Other)
  Sender: FDA-Public Use
  Company Number: GXKR2011DE02235

PATIENT
  Age: 81 Year
  Sex: Female
  Weight: 62 kg

DRUGS (8)
  1. SIMVASTATIN [Concomitant]
     Dosage: 20 MG, QD
     Route: 048
     Dates: start: 20100101
  2. ARTELAC [Concomitant]
     Dosage: 1 DRP, QD PER EYE
     Dates: start: 20080401
  3. MELPERONE [Suspect]
     Indication: HALLUCINATION
  4. DULCOLAX [Concomitant]
     Dosage: 1 DF/2-3XWEEKLY
     Route: 048
     Dates: start: 20101001, end: 20110322
  5. HERBAL PREPARATION [Concomitant]
     Dosage: 1 DF, QD
     Route: 048
     Dates: start: 20101001
  6. IBUPROFEN [Suspect]
     Dosage: AT LEAST 1 TABLET WEEKLY
     Route: 048
     Dates: start: 20100909, end: 20110531
  7. MELPERONE [Suspect]
     Indication: ANXIETY
     Dosage: ALTOGETHER NEARLY 3 TABLETS
     Route: 048
     Dates: start: 20110318, end: 20110321
  8. RISPERIDONE [Suspect]
     Dosage: 1 MG, QD
     Route: 048
     Dates: start: 20110528, end: 20110608

REACTIONS (2)
  - HEPATITIS ACUTE [None]
  - JAUNDICE [None]
